FAERS Safety Report 15066486 (Version 1)
Quarter: 2018Q2

REPORT INFORMATION
  Report Type: Spontaneous
  Country: US (occurrence: US)
  Receive Date: 20180626
  Receipt Date: 20180626
  Transmission Date: 20180711
  Serious: Yes (Life-Threatening, Hospitalization, Other)
  Sender: FDA-Public Use
  Company Number: US-IBIGEN-2018.04318

PATIENT
  Age: 56 Year
  Sex: Male

DRUGS (1)
  1. UNK [Suspect]
     Active Substance: UNSPECIFIED INGREDIENT
     Indication: ANIMAL BITE
     Dosage: ()
     Route: 042

REACTIONS (2)
  - Tubulointerstitial nephritis [Recovering/Resolving]
  - Leukocytosis [Unknown]
